FAERS Safety Report 6787525-9 (Version None)
Quarter: 2010Q2

REPORT INFORMATION
  Report Type: 
  Country: None (occurrence: None)
  Receive Date: 20100623
  Receipt Date: 20090107
  Transmission Date: 20101027
  Serious: Yes (Other)
  Sender: FDA-Public Use
  Company Number: US-PFIZER INC-2005151017

PATIENT
  Sex: Male
  Weight: 35.38 kg

DRUGS (5)
  1. GEODON [Suspect]
     Dosage: UNK
     Route: 065
     Dates: start: 20050516, end: 20050601
  2. TRAZODONE HCL [Suspect]
     Indication: ILL-DEFINED DISORDER
     Route: 065
     Dates: start: 20050101
  3. RITALIN [Concomitant]
     Route: 065
  4. CLONIDINE [Concomitant]
     Route: 065
  5. DOXEPIN [Concomitant]
     Dosage: UNK

REACTIONS (2)
  - CONVULSION [None]
  - DYSKINESIA [None]
